FAERS Safety Report 7023896-6 (Version None)
Quarter: 2010Q3

REPORT INFORMATION
  Report Type: 
  Country: None (occurrence: None)
  Receive Date: 20100916
  Receipt Date: 20100803
  Transmission Date: 20110219
  Serious: Yes (Other)
  Sender: FDA-Public Use
  Company Number: DKLU1064169

PATIENT
  Age: 25 Year
  Sex: Male

DRUGS (2)
  1. SABRIL [Suspect]
     Indication: CONVULSION
     Dosage: 500 MG MILLIGRAM(S), 2 IN 1 D, ORAL, 500 MG MILLIGRAM(S), 1 IN 1 D, ORAL
     Route: 048
     Dates: start: 20100501, end: 20100501
  2. SABRIL [Suspect]
     Indication: CONVULSION
     Dosage: 500 MG MILLIGRAM(S), 2 IN 1 D, ORAL, 500 MG MILLIGRAM(S), 1 IN 1 D, ORAL
     Route: 048
     Dates: start: 20100601, end: 20100803

REACTIONS (3)
  - CONVULSION [None]
  - DROOLING [None]
  - LETHARGY [None]
